FAERS Safety Report 4326229-9 (Version None)
Quarter: 2004Q1

REPORT INFORMATION
  Report Type: 
  Country: None (occurrence: None)
  Receive Date: 20040324
  Receipt Date: 20040310
  Transmission Date: 20041129
  Serious: Yes (Other)
  Sender: FDA-Public Use
  Company Number: 2004-UK-00239UK

PATIENT
  Sex: Female

DRUGS (1)
  1. SPIRIVA [Suspect]
     Indication: CHRONIC OBSTRUCTIVE AIRWAYS DISEASE
     Dosage: PO
     Route: 048

REACTIONS (3)
  - APHONIA [None]
  - DIARRHOEA [None]
  - PHARYNGOLARYNGEAL PAIN [None]
